FAERS Safety Report 14142311 (Version 1)
Quarter: 2017Q4

REPORT INFORMATION
  Report Type: Spontaneous
  Country: DE (occurrence: DE)
  Receive Date: 20171030
  Receipt Date: 20171030
  Transmission Date: 20180321
  Serious: Yes (Hospitalization, Other)
  Sender: FDA-Public Use
  Company Number: DE-BAYER-2017-204518

PATIENT
  Age: 41 Year
  Sex: Female

DRUGS (1)
  1. MIRENA [Suspect]
     Active Substance: LEVONORGESTREL
     Dosage: 20 MCG/24HR, UNK
     Route: 015
     Dates: start: 20090201, end: 20170206

REACTIONS (8)
  - Uterine leiomyoma [Recovering/Resolving]
  - Osteoarthritis [Recovering/Resolving]
  - Mastitis [Recovered/Resolved]
  - Migraine [Recovered/Resolved]
  - Arthralgia [Recovering/Resolving]
  - Device use issue [None]
  - Loss of libido [Recovering/Resolving]
  - Depression suicidal [Recovered/Resolved]

NARRATIVE: CASE EVENT DATE: 20090201
